FAERS Safety Report 9921596 (Version 1)
Quarter: 2014Q1

REPORT INFORMATION
  Report Type: Spontaneous
  Country: US (occurrence: None)
  Receive Date: 20140221
  Receipt Date: 20140221
  Transmission Date: 20141002
  Serious: Yes (Other)
  Sender: FDA-Public Use
  Company Number: None

PATIENT
  Age: 59 Year
  Sex: Female
  Weight: 62.3 kg

DRUGS (1)
  1. PROLIA [Suspect]
     Indication: OSTEOPOROSIS
     Dosage: 60 MG IN A 1 ML SOLUTION  TWICE/YR  SUBCUTANEOUS INJECTION
     Route: 058
     Dates: start: 20131017

REACTIONS (6)
  - Back pain [None]
  - Arthralgia [None]
  - Groin pain [None]
  - Pain in extremity [None]
  - Arthralgia [None]
  - Gait disturbance [None]
